FAERS Safety Report 6472022-0 (Version None)
Quarter: 2009Q4

REPORT INFORMATION
  Report Type: 
  Country: None (occurrence: None)
  Receive Date: 20091203
  Receipt Date: 20080514
  Transmission Date: 20100525
  Serious: Yes (Other)
  Sender: FDA-Public Use
  Company Number: US-ELI_LILLY_AND_COMPANY-US200804002411

PATIENT
  Age: 57 Year
  Sex: Male

DRUGS (3)
  1. GEMZAR [Suspect]
     Indication: PANCREATIC CARCINOMA
     Dosage: 1000 MG/M2, UNK
     Dates: start: 20060505
  2. TARCEVA [Concomitant]
     Indication: PANCREATIC CARCINOMA
     Dosage: 150 MG, DAILY (1/D)
     Dates: start: 20070521, end: 20080220
  3. XELODA [Concomitant]
     Indication: PANCREATIC CARCINOMA
     Dosage: 650 MG/M2, Q 12 H
     Dates: start: 20060515, end: 20070529

REACTIONS (1)
  - RENAL VASCULITIS [None]
